FAERS Safety Report 15727579 (Version 1)
Quarter: 2018Q4

REPORT INFORMATION
  Report Type: Spontaneous
  Country: US (occurrence: US)
  Receive Date: 20181217
  Receipt Date: 20181217
  Transmission Date: 20190205
  Serious: No
  Sender: FDA-Public Use
  Company Number: US-NOVEN PHARMACEUTICALS, INC.-US2017001395

PATIENT

DRUGS (3)
  1. PROGESTERONE. [Concomitant]
     Active Substance: PROGESTERONE
  2. MINIVELLE [Suspect]
     Active Substance: ESTRADIOL
     Indication: PRODUCT USED FOR UNKNOWN INDICATION
     Dosage: 0.1 MG, 2/WK
     Route: 062
  3. MINIVELLE [Suspect]
     Active Substance: ESTRADIOL
     Dosage: 0.1 MG, 2/WK
     Route: 062

REACTIONS (3)
  - Hypertension [Recovered/Resolved]
  - Product adhesion issue [Not Recovered/Not Resolved]
  - Therapy cessation [Recovered/Resolved]
